FAERS Safety Report 14602748 (Version 1)
Quarter: 2018Q1

REPORT INFORMATION
  Report Type: Spontaneous
  Country: US (occurrence: US)
  Receive Date: 20180304
  Receipt Date: 20180304
  Transmission Date: 20180509
  Serious: Yes (Hospitalization)
  Sender: FDA-Public Use
  Company Number: None

PATIENT
  Age: 55 Year
  Sex: Male
  Weight: 132 kg

DRUGS (2)
  1. METHOTREXATE. [Suspect]
     Active Substance: METHOTREXATE
     Indication: RHEUMATOID ARTHRITIS
     Route: 048
     Dates: start: 20130626
  2. INFLIXIMAB [Suspect]
     Active Substance: INFLIXIMAB
     Indication: RHEUMATOID ARTHRITIS
     Route: 042
     Dates: start: 20170816, end: 20170823

REACTIONS (11)
  - Musculoskeletal chest pain [None]
  - Body temperature increased [None]
  - Oropharyngeal pain [None]
  - Back pain [None]
  - Pyrexia [None]
  - Pain in extremity [None]
  - Serum sickness [None]
  - Feeling cold [None]
  - Musculoskeletal pain [None]
  - Arthralgia [None]
  - Leukocytosis [None]

NARRATIVE: CASE EVENT DATE: 20170823
